FAERS Safety Report 25744769 (Version 2)
Quarter: 2025Q4

REPORT INFORMATION
  Report Type: Report from Study
  Country: CH (occurrence: CH)
  Receive Date: 20250901
  Receipt Date: 20251001
  Transmission Date: 20260118
  Serious: Yes (Other)
  Sender: ROCHE
  Company Number: CH-ROCHE-10000369271

PATIENT

DRUGS (1)
  1. ATEZOLIZUMAB [Suspect]
     Active Substance: ATEZOLIZUMAB
     Indication: Neoplasm malignant
     Route: 065

REACTIONS (18)
  - Drug-induced liver injury [Unknown]
  - Colitis [Unknown]
  - Cholecystitis [Unknown]
  - Pancreatitis [Unknown]
  - Diabetes mellitus [Unknown]
  - Hypopituitarism [Unknown]
  - Adrenal insufficiency [Unknown]
  - Interstitial lung disease [Unknown]
  - Toxic encephalopathy [Unknown]
  - Myasthenia gravis [Unknown]
  - Optic neuritis [Unknown]
  - Myocarditis [Unknown]
  - Cardiomyopathy [Unknown]
  - Tachycardia paroxysmal [Unknown]
  - Pericardial effusion [Unknown]
  - Nephropathy [Unknown]
  - Acute kidney injury [Unknown]
  - Chronic kidney disease [Unknown]
